FAERS Safety Report 7446137-4 (Version None)
Quarter: 2011Q2

REPORT INFORMATION
  Report Type: 
  Country: None (occurrence: None)
  Receive Date: 20110429
  Receipt Date: 20110421
  Transmission Date: 20111010
  Serious: Yes (Other)
  Sender: FDA-Public Use
  Company Number: B0699647A

PATIENT
  Sex: Male
  Weight: 81 kg

DRUGS (1)
  1. DERMOVATE [Suspect]
     Route: 061
     Dates: start: 19940101, end: 20110101

REACTIONS (1)
  - CHORIORETINOPATHY [None]
